FAERS Safety Report 19780729 (Version 2)
Quarter: 2021Q3

REPORT INFORMATION
  Report Type: Spontaneous
  Country: US (occurrence: US)
  Receive Date: 20210902
  Receipt Date: 20210903
  Transmission Date: 20211014
  Serious: Yes (Hospitalization, Other)
  Sender: FDA-Public Use
  Company Number: US-GALTPHARMA-2021-US-017818

PATIENT
  Age: 61 Year
  Sex: Female
  Weight: 81.65 kg

DRUGS (5)
  1. QUAZEPAM (30 COUNT) [Suspect]
     Active Substance: QUAZEPAM
     Indication: INSOMNIA
     Dosage: 1 TABLET AT BEDTIME, 0.5 TABLET ON 31?JUL?2021
     Route: 048
     Dates: start: 20210728, end: 20210731
  2. FISH OIL [Concomitant]
     Active Substance: FISH OIL
  3. MULTIVITAMIN [Concomitant]
     Active Substance: VITAMINS
  4. ARMODAFINIL. [Suspect]
     Active Substance: ARMODAFINIL
     Indication: SOMNOLENCE
     Dosage: 250MG TAKEN IN AM FOR YEARS
  5. VITAMIN D3 [Concomitant]
     Active Substance: CHOLECALCIFEROL

REACTIONS (9)
  - Fall [Recovered/Resolved]
  - Gait disturbance [Unknown]
  - Dizziness [Recovered/Resolved]
  - Hypersensitivity [Recovered/Resolved]
  - Incorrect dose administered [Recovered/Resolved]
  - Memory impairment [Unknown]
  - Hypersomnia [Recovered/Resolved]
  - Dysarthria [Recovered/Resolved]
  - Dysmetria [Recovered/Resolved]

NARRATIVE: CASE EVENT DATE: 20210728
